FAERS Safety Report 8241398-6 (Version None)
Quarter: 2012Q1

REPORT INFORMATION
  Report Type: 
  Country: None (occurrence: None)
  Receive Date: 20120328
  Receipt Date: 20120319
  Transmission Date: 20120608
  Serious: Yes (Hospitalization)
  Sender: FDA-Public Use
  Company Number: US-ALEXION-A201200546

PATIENT
  Sex: Female

DRUGS (3)
  1. HEMOPHILUS INFLUENZA VACCINE [Concomitant]
     Dosage: UNK
     Dates: start: 20120120, end: 20120120
  2. SOLIRIS [Suspect]
     Indication: PAROXYSMAL NOCTURNAL HAEMOGLOBINURIA
     Dosage: UNK
     Route: 042
  3. PNEUMOCOCCAL VACCINE [Concomitant]
     Dosage: UNK
     Dates: start: 20111222, end: 20111222

REACTIONS (2)
  - TRANSFUSION REACTION [None]
  - NON-CARDIOGENIC PULMONARY OEDEMA [None]
